FAERS Safety Report 5629031-0 (Version None)
Quarter: 2008Q1

REPORT INFORMATION
  Report Type: 
  Country: None (occurrence: None)
  Receive Date: 20080216
  Receipt Date: 20080110
  Transmission Date: 20080703
  Serious: No
  Sender: FDA-Public Use
  Company Number: US-BAXTER-2008BH000122

PATIENT
  Age: 63 Year
  Sex: Female
  Weight: 93 kg

DRUGS (16)
  1. HEPARIN SODIUM [Suspect]
     Indication: ANTICOAGULANT THERAPY
     Route: 010
  2. NEPHROCAPS [Concomitant]
     Indication: DRUG USE FOR UNKNOWN INDICATION
     Route: 048
  3. METOCLOPRAM [Concomitant]
     Indication: DRUG USE FOR UNKNOWN INDICATION
     Route: 048
  4. NEUROTON [Concomitant]
     Indication: NEUROPATHY PERIPHERAL
     Route: 048
  5. PROCARDIA [Concomitant]
     Indication: BLOOD PRESSURE
     Route: 048
  6. TOPROL-XL [Concomitant]
     Indication: BLOOD PRESSURE
     Route: 048
  7. REQUIP [Concomitant]
     Indication: DRUG USE FOR UNKNOWN INDICATION
     Route: 048
  8. ZOLOFT [Concomitant]
     Indication: ANTIDEPRESSANT THERAPY
     Route: 048
  9. PRERACID [Concomitant]
     Indication: DRUG USE FOR UNKNOWN INDICATION
     Dosage: DOSE UNIT:UNKNOWN
     Route: 065
  10. LORAZEPAM [Concomitant]
     Indication: DRUG USE FOR UNKNOWN INDICATION
     Route: 048
  11. EPOGEN [Concomitant]
     Indication: ANAEMIA
     Route: 042
  12. ZEMPLAR [Concomitant]
     Indication: HYPERPARATHYROIDISM
     Route: 042
  13. VENOFER [Concomitant]
     Indication: ANAEMIA
     Route: 042
  14. SENSIPAR [Concomitant]
     Indication: HYPERPARATHYROIDISM SECONDARY
     Route: 048
  15. PHOSLO [Concomitant]
     Indication: HYPERPHOSPHATAEMIA
     Route: 048
  16. LANTUS [Concomitant]
     Indication: DRUG USE FOR UNKNOWN INDICATION
     Route: 058

REACTIONS (8)
  - BLOOD CULTURE POSITIVE [None]
  - DYSPNOEA [None]
  - FEELING HOT [None]
  - FLUSHING [None]
  - HYPERHIDROSIS [None]
  - NAUSEA [None]
  - THIRST [None]
  - VOMITING [None]
